FAERS Safety Report 6725267-6 (Version None)
Quarter: 2010Q2

REPORT INFORMATION
  Report Type: 
  Country: None (occurrence: None)
  Receive Date: 20100512
  Receipt Date: 20100427
  Transmission Date: 20101027
  Serious: Yes (Other)
  Sender: FDA-Public Use
  Company Number: B0650967A

PATIENT
  Age: 43 Year
  Sex: Female

DRUGS (3)
  1. MELPHALAN (FORMULATION UNKNOWN) (MELPHALAN) [Suspect]
     Indication: NON-HODGKIN'S LYMPHOMA
     Dosage: 50 MG/M2 INTRAVENOUS
     Route: 042
  2. MYLERAN [Suspect]
     Indication: NON-HODGKIN'S LYMPHOMA
     Dosage: 130 MG/M2 INTRAVENOUS
     Route: 042
  3. THIOTEPA [Suspect]
     Indication: NON-HODGKIN'S LYMPHOMA
     Dosage: 250 MG/M2 INTRAVENOUS
     Route: 042

REACTIONS (4)
  - DRUG TOXICITY [None]
  - GASTROINTESTINAL TOXICITY [None]
  - HEPATOTOXICITY [None]
  - MUCOSAL INFLAMMATION [None]
